FAERS Safety Report 5026981-3 (Version None)
Quarter: 2006Q2

REPORT INFORMATION
  Report Type: 
  Country: None (occurrence: None)
  Receive Date: 20060609
  Receipt Date: 20060529
  Transmission Date: 20061013
  Serious: Yes (Hospitalization)
  Sender: FDA-Public Use
  Company Number: 2006069043

PATIENT
  Age: 24 Year
  Sex: Male
  Weight: 62 kg

DRUGS (9)
  1. ANSATIPINE (RIFABUTIN) [Suspect]
     Indication: INTERVERTEBRAL DISCITIS
     Dosage: SEE IMAGE
     Route: 048
     Dates: end: 20060417
  2. DIFLUCAN [Concomitant]
  3. CLONAZEPAM [Concomitant]
  4. CLARITHROMYCIN [Concomitant]
  5. METHADONE HCL [Concomitant]
  6. LEVOFLOXACIN [Concomitant]
  7. PAROXETINE HYDROCHLORIDE [Concomitant]
  8. IMOVANE (ZOPICLONE) [Concomitant]
  9. PROPOFAN (CAFFEINE, CARBASALATE CALCIUM, CHLORPHENAMINE MALEATE, DEXTR [Concomitant]

REACTIONS (10)
  - BLOOD ALKALINE PHOSPHATASE INCREASED [None]
  - BLOOD FIBRINOGEN INCREASED [None]
  - ERYTHEMA [None]
  - GAMMA-GLUTAMYLTRANSFERASE INCREASED [None]
  - HAEMOGLOBIN DECREASED [None]
  - INFLAMMATION [None]
  - OEDEMA PERIPHERAL [None]
  - PAIN IN EXTREMITY [None]
  - PROTEIN TOTAL INCREASED [None]
  - PRURITUS GENERALISED [None]
